FAERS Safety Report 16302906 (Version 5)
Quarter: 2019Q2

REPORT INFORMATION
  Report Type: Spontaneous
  Country: US (occurrence: US)
  Receive Date: 20190513
  Receipt Date: 20190626
  Transmission Date: 20190711
  Serious: Yes (Hospitalization)
  Sender: FDA-Public Use
  Company Number: US-CELGENEUS-USA-20190502385

PATIENT
  Age: 69 Year
  Sex: Female

DRUGS (1)
  1. OTEZLA [Suspect]
     Active Substance: APREMILAST
     Indication: PSORIASIS
     Dosage: 60 MILLIGRAM
     Route: 048
     Dates: start: 201903, end: 20190501

REACTIONS (4)
  - Hepatomegaly [Recovering/Resolving]
  - Hepatic enzyme increased [Recovering/Resolving]
  - Diarrhoea [Recovered/Resolved]
  - Cystitis [Recovering/Resolving]

NARRATIVE: CASE EVENT DATE: 201904
